FAERS Safety Report 15012004 (Version 1)
Quarter: 2018Q2

REPORT INFORMATION
  Report Type: Spontaneous
  Country: US (occurrence: US)
  Receive Date: 20180522
  Receipt Date: 20180522
  Transmission Date: 20180711
  Serious: Yes (Hospitalization)
  Sender: FDA-Public Use
  Company Number: None

PATIENT
  Age: 42 Year
  Sex: Male

DRUGS (1)
  1. VANCOMYCIN [Suspect]
     Active Substance: VANCOMYCIN
     Indication: INFECTION
     Route: 042
     Dates: start: 20180413, end: 20180423

REACTIONS (8)
  - Acute kidney injury [None]
  - Lethargy [None]
  - Toxicity to various agents [None]
  - Fatigue [None]
  - Rash generalised [None]
  - Dehydration [None]
  - Pyrexia [None]
  - Mobility decreased [None]

NARRATIVE: CASE EVENT DATE: 20180423
